FAERS Safety Report 9245234 (Version 3)
Quarter: 2013Q2

REPORT INFORMATION
  Report Type: Report from Study
  Country: AU (occurrence: AU)
  Receive Date: 20130422
  Receipt Date: 20130529
  Transmission Date: 20140414
  Serious: Yes (Disabling, Other)
  Sender: FDA-Public Use
  Company Number: PHHY2013AU037871

PATIENT
  Age: 72 Year
  Sex: Female

DRUGS (11)
  1. ACLASTA [Suspect]
     Dosage: 5 MG
     Route: 042
     Dates: start: 20090527
  2. ACLASTA [Suspect]
     Dosage: 5 MG
     Route: 042
     Dates: start: 20100525
  3. ACLASTA [Suspect]
     Dosage: 5 MG
     Route: 042
     Dates: start: 20110603
  4. ACLASTA [Suspect]
     Dosage: 5 MG
     Route: 042
     Dates: start: 20120525
  5. THYROXINE [Concomitant]
  6. ARAVA [Concomitant]
     Dosage: UNK UKN, UNK
  7. PREDNISOLONE [Concomitant]
     Dosage: 5 MG, QD
  8. ISOPTIN [Concomitant]
  9. ANALGESIC                          /00509701/ [Concomitant]
     Route: 048
  10. IMURAN [Concomitant]
     Dosage: 125 MG, QD
  11. LIPITOR [Concomitant]
     Dosage: 10 MG, UNK
     Route: 048

REACTIONS (3)
  - Jaw disorder [Unknown]
  - Osteonecrosis of jaw [Not Recovered/Not Resolved]
  - Pain [Unknown]
